FAERS Safety Report 5106918-9 (Version None)
Quarter: 2006Q3

REPORT INFORMATION
  Report Type: 
  Country: None (occurrence: None)
  Receive Date: 20060913
  Receipt Date: 20060828
  Transmission Date: 20061208
  Serious: Yes (Hospitalization)
  Sender: FDA-Public Use
  Company Number: FR200606006113

PATIENT
  Age: 84 Year
  Sex: Female
  Weight: 56 kg

DRUGS (5)
  1. FORTEO [Suspect]
     Indication: OSTEOPOROSIS
     Dosage: 20 UG, DAILY (1/D), SUBCUTANEOUS
     Route: 058
     Dates: start: 20050801
  2. FORTEO [Concomitant]
  3. MEDIATENSYL (URAPIDIL) [Concomitant]
  4. CALCIDOSE VITAMINE D (CALCIUM CARBONATE, COLECALCIFEROL) [Concomitant]
  5. ZESTRIL [Concomitant]

REACTIONS (1)
  - FAILURE TO THRIVE [None]
